FAERS Safety Report 16803992 (Version 1)
Quarter: 2019Q3

REPORT INFORMATION
  Report Type: Spontaneous
  Country: US (occurrence: US)
  Receive Date: 20190913
  Receipt Date: 20190913
  Transmission Date: 20191005
  Serious: No
  Sender: FDA-Public Use
  Company Number: US-009507513-1908USA006068

PATIENT
  Age: 45 Year
  Sex: Female

DRUGS (6)
  1. BEXAROTENE. [Concomitant]
     Active Substance: BEXAROTENE
     Indication: CUTANEOUS T-CELL LYMPHOMA STAGE III
     Dosage: UNK
  2. ROMIDEPSIN. [Concomitant]
     Active Substance: ROMIDEPSIN
     Indication: CUTANEOUS T-CELL LYMPHOMA STAGE III
     Dosage: UNK
  3. INTRON A [Suspect]
     Active Substance: INTERFERON ALFA-2B
     Indication: CUTANEOUS T-CELL LYMPHOMA STAGE III
     Dosage: UNK
  4. KEYTRUDA [Suspect]
     Active Substance: PEMBROLIZUMAB
     Indication: CUTANEOUS T-CELL LYMPHOMA STAGE III
     Dosage: UNK
  5. BRENTUXIMAB VEDOTIN [Concomitant]
     Active Substance: BRENTUXIMAB VEDOTIN
     Indication: CUTANEOUS T-CELL LYMPHOMA STAGE III
     Dosage: UNK
  6. MECHLORETHAMINE HYDROCHLORIDE [Concomitant]
     Active Substance: MECHLORETHAMINE HYDROCHLORIDE
     Indication: CUTANEOUS T-CELL LYMPHOMA STAGE III
     Dosage: UNK
     Route: 061

REACTIONS (1)
  - Off label use [Unknown]
